FAERS Safety Report 5511034-8 (Version None)
Quarter: 2007Q4

REPORT INFORMATION
  Report Type: 
  Country: None (occurrence: None)
  Receive Date: 20071109
  Receipt Date: 20071101
  Transmission Date: 20080405
  Serious: Yes (Other)
  Sender: FDA-Public Use
  Company Number: US-JNJFOC-20071100845

PATIENT
  Sex: Male
  Weight: 158.76 kg

DRUGS (5)
  1. FENTANYL TRANSDERMAL SYSTEM [Suspect]
     Indication: PAIN
     Dosage: 2X 25UG/HR PATCHES
     Route: 062
  2. CHEMOTHERAPY [Suspect]
     Indication: LUNG NEOPLASM MALIGNANT
     Route: 065
  3. PREDNISONE [Suspect]
     Indication: RESPIRATORY DISORDER
     Route: 065
  4. PREDNISONE [Suspect]
     Indication: BRAIN OEDEMA
     Route: 065
  5. LISINOPRIL WITH HYDROCHLORIAZIDE [Concomitant]
     Indication: BLOOD PRESSURE
     Dosage: 5MG/6.5MG
     Route: 048

REACTIONS (11)
  - AGITATION [None]
  - BRAIN OEDEMA [None]
  - BREAKTHROUGH PAIN [None]
  - DIABETES MELLITUS [None]
  - HYPERHIDROSIS [None]
  - IRRITABILITY [None]
  - PHARMACEUTICAL PRODUCT COMPLAINT [None]
  - RESPIRATORY DISORDER [None]
  - RESTLESSNESS [None]
  - URINARY TRACT INFECTION [None]
  - WRONG TECHNIQUE IN DRUG USAGE PROCESS [None]
